FAERS Safety Report 9368845 (Version 2)
Quarter: 2013Q3

REPORT INFORMATION
  Report Type: Spontaneous
  Country: US (occurrence: US)
  Receive Date: 20130626
  Receipt Date: 20130717
  Transmission Date: 20140515
  Serious: No
  Sender: FDA-Public Use
  Company Number: US-009507513-1306USA006843

PATIENT
  Age: 47 Year
  Sex: Female

DRUGS (3)
  1. ASMANEX TWISTHALER [Suspect]
     Indication: ASTHMA
     Dosage: ONE INHALATION DAILY, STRENGTH REPORTED AS AER_EA 220 MICROGRAM ONE STANDARD DOSE OF 30
     Route: 055
     Dates: start: 20130521
  2. NASONEX [Concomitant]
  3. SINGULAIR [Concomitant]
     Route: 048

REACTIONS (3)
  - Dyspnoea [Recovered/Resolved]
  - Drug dose omission [Unknown]
  - Product quality issue [Unknown]
